FAERS Safety Report 25745019 (Version 1)
Quarter: 2025Q3

REPORT INFORMATION
  Report Type: 
  Country: CN (occurrence: CN)
  Receive Date: 20250901
  Receipt Date: 20250901
  Transmission Date: 20251020
  Serious: Yes (Life-Threatening, Disabling)
  Sender: JIANGSU HANSOH PHARMACEUTICAL GROUP CO., LTD.
  Company Number: CN-Hansoh-20252190015845

PATIENT
  Age: 54 Year
  Sex: Female
  Weight: 71.75 kg

DRUGS (6)
  1. AZACITIDINE [Suspect]
     Active Substance: AZACITIDINE
     Indication: Acute myeloid leukaemia
     Dosage: 0.1 G, QD
     Route: 058
     Dates: start: 20250813, end: 20250819
  2. VENETOCLAX [Suspect]
     Active Substance: VENETOCLAX
     Indication: Acute myeloid leukaemia
     Dosage: 100 MG, QD
     Route: 048
     Dates: start: 20250813, end: 20250813
  3. VENETOCLAX [Suspect]
     Active Substance: VENETOCLAX
     Dosage: 200 MG, QD
     Route: 048
     Dates: start: 20250814, end: 20250814
  4. VENETOCLAX [Suspect]
     Active Substance: VENETOCLAX
     Dosage: 400 MG, QD
     Route: 048
     Dates: start: 20250815, end: 20250825
  5. Tiopronin for Injection [Concomitant]
     Indication: Acute myeloid leukaemia
     Dosage: 0.2 G, QD
     Route: 041
     Dates: start: 20250813, end: 20250819
  6. Tiopronin for Injection [Concomitant]
     Indication: Hepatobiliary disorder prophylaxis

REACTIONS (3)
  - Myelosuppression [Unknown]
  - Inflammatory marker increased [Unknown]
  - Pyrexia [Recovered/Resolved]

NARRATIVE: CASE EVENT DATE: 20250815
